FAERS Safety Report 14982713 (Version 1)
Quarter: 2018Q2

REPORT INFORMATION
  Report Type: Spontaneous
  Country: US (occurrence: US)
  Receive Date: 20180607
  Receipt Date: 20180607
  Transmission Date: 20180711
  Serious: Yes (Other)
  Sender: FDA-Public Use
  Company Number: US-SA-2017SA252226

PATIENT
  Age: 52 Year
  Sex: Female
  Weight: 72.5 kg

DRUGS (4)
  1. TAXOTERE [Suspect]
     Active Substance: DOCETAXEL
     Indication: BREAST CANCER
     Dosage: 135 MG, QCY
     Route: 042
     Dates: start: 20130927, end: 20130927
  2. TAXOTERE [Suspect]
     Active Substance: DOCETAXEL
     Dosage: 135 UNK, QCY
     Route: 042
     Dates: start: 20140120, end: 20140120
  3. CYTOXAN [Concomitant]
     Active Substance: CYCLOPHOSPHAMIDE
     Dosage: UNK
  4. ADRIAMYCIN, DOXIL [Concomitant]
     Dosage: UNK

REACTIONS (1)
  - Alopecia [Recovering/Resolving]

NARRATIVE: CASE EVENT DATE: 201309
